FAERS Safety Report 7108965-4 (Version None)
Quarter: 2010Q4

REPORT INFORMATION
  Report Type: 
  Country: None (occurrence: None)
  Receive Date: 20101117
  Receipt Date: 20101104
  Transmission Date: 20110411
  Serious: Yes (Death)
  Sender: FDA-Public Use
  Company Number: GB-BAUSCH-2010BL006275

PATIENT
  Age: 49 Year
  Sex: Male

DRUGS (4)
  1. PREDNISOLONE [Suspect]
     Indication: RENAL TRANSPLANT
     Dates: start: 20030101, end: 20090101
  2. MYCOPHENOLATE MOFETIL [Suspect]
     Indication: RENAL TRANSPLANT
     Dates: start: 20040101, end: 20090101
  3. TACROLIMUS [Suspect]
     Indication: RENAL TRANSPLANT
     Dates: start: 20030101, end: 20080101
  4. COTRIM [Concomitant]
     Indication: PROPHYLAXIS
     Route: 042
     Dates: start: 20030101, end: 20080101

REACTIONS (2)
  - CEREBRAL TOXOPLASMOSIS [None]
  - PNEUMONIA [None]
